FAERS Safety Report 5362077-9 (Version None)
Quarter: 2007Q2

REPORT INFORMATION
  Report Type: 
  Country: None (occurrence: None)
  Receive Date: 20070615
  Receipt Date: 20070615
  Transmission Date: 20071010
  Serious: Yes (Other)
  Sender: FDA-Public Use
  Company Number: None

PATIENT
  Age: 28 Year
  Sex: Female
  Weight: 70.3075 kg

DRUGS (1)
  1. AQUAFRESH [Suspect]
     Indication: DENTAL DISORDER PROPHYLAXIS
     Dosage: 4.5 O.Z
     Dates: start: 20070613, end: 20070613

REACTIONS (6)
  - LIP SWELLING [None]
  - OEDEMA MOUTH [None]
  - OEDEMA MUCOSAL [None]
  - ORAL DISCOMFORT [None]
  - PHARYNGEAL OEDEMA [None]
  - SWOLLEN TONGUE [None]
